FAERS Safety Report 17499361 (Version 2)
Quarter: 2022Q2

REPORT INFORMATION
  Report Type: Spontaneous
  Country: US (occurrence: US)
  Receive Date: 20200305
  Receipt Date: 20220623
  Transmission Date: 20220721
  Serious: Yes (Disabling)
  Sender: FDA-Public Use
  Company Number: US-TEVA-2020-US-1192842

PATIENT
  Age: 56 Year
  Sex: Female
  Weight: 83.91 kg

DRUGS (3)
  1. DOCETAXEL [Suspect]
     Active Substance: DOCETAXEL
     Indication: Breast cancer female
     Dosage: DOSAGE: 140MG, EVERY THREE WEEKS, 4 CYCLES
     Route: 065
     Dates: start: 20130815, end: 20131101
  2. DOCETAXEL [Suspect]
     Active Substance: DOCETAXEL
     Indication: Breast cancer female
     Dosage: DOSAGE: 140MG, EVERY THREE WEEKS, 4 CYCLES
     Route: 065
     Dates: start: 20130815, end: 20131101
  3. CYTOXAN [Suspect]
     Active Substance: CYCLOPHOSPHAMIDE
     Indication: Breast cancer female
     Dosage: EVERY THREE WEEKS, 4 CYCLES
     Route: 065
     Dates: start: 20130815, end: 20131101

REACTIONS (4)
  - Alopecia totalis [Not Recovered/Not Resolved]
  - Madarosis [Not Recovered/Not Resolved]
  - Hair texture abnormal [Not Recovered/Not Resolved]
  - Hair colour changes [Not Recovered/Not Resolved]

NARRATIVE: CASE EVENT DATE: 20130825
